FAERS Safety Report 9537648 (Version 1)
Quarter: 2013Q3

REPORT INFORMATION
  Report Type: Spontaneous
  Country: US (occurrence: US)
  Receive Date: 20130919
  Receipt Date: 20130919
  Transmission Date: 20140515
  Serious: Yes (Other)
  Sender: FDA-Public Use
  Company Number: US-TEVA-432954USA

PATIENT
  Sex: Male

DRUGS (4)
  1. PROAIR HFA [Suspect]
     Indication: ASTHMA
  2. FLUTICASONE [Concomitant]
     Indication: HYPERSENSITIVITY
  3. ASTELIN [Concomitant]
     Indication: HYPERSENSITIVITY
  4. EYE DROPS [Concomitant]
     Indication: HYPERSENSITIVITY

REACTIONS (3)
  - Sinus operation [Recovered/Resolved]
  - Eyelid oedema [Unknown]
  - Hypersensitivity [Unknown]
